FAERS Safety Report 8319237-4 (Version None)
Quarter: 2012Q2

REPORT INFORMATION
  Report Type: 
  Country: None (occurrence: None)
  Receive Date: 20120427
  Receipt Date: 20120411
  Transmission Date: 20120825
  Serious: No
  Sender: FDA-Public Use
  Company Number: US-JNJFOC-20120406525

PATIENT
  Age: 49 Year
  Sex: Female

DRUGS (1)
  1. INVEGA [Suspect]
     Indication: SCHIZOPHRENIA
     Dosage: 12 MG/PILL/9 MG, 3 MG
     Route: 048
     Dates: end: 20120401

REACTIONS (1)
  - INCORRECT DOSE ADMINISTERED [None]
